FAERS Safety Report 6368496-6 (Version None)
Quarter: 2009Q3

REPORT INFORMATION
  Report Type: 
  Country: None (occurrence: None)
  Receive Date: 20090922
  Receipt Date: 20080319
  Transmission Date: 20100115
  Serious: Yes (Other)
  Sender: FDA-Public Use
  Company Number: B0505849A

PATIENT
  Sex: Female
  Weight: 25 kg

DRUGS (6)
  1. RELENZA [Suspect]
     Indication: INFLUENZA
     Dosage: 5MG TWICE PER DAY
     Route: 055
     Dates: start: 20080125, end: 20080126
  2. CEFACLOR [Suspect]
     Indication: URINARY RETENTION
     Route: 048
     Dates: start: 20080126, end: 20080126
  3. HOKUNALIN [Concomitant]
     Indication: BRONCHITIS
     Dosage: 1MG PER DAY
     Route: 062
     Dates: start: 20080125, end: 20080126
  4. PRIMPERAN [Concomitant]
     Indication: GASTROENTERITIS BACTERIAL
     Dosage: 15MG PER DAY
     Route: 048
     Dates: start: 20080124, end: 20080125
  5. MUCOSTA [Concomitant]
     Indication: GASTROENTERITIS BACTERIAL
     Dosage: 200MG PER DAY
     Route: 048
     Dates: start: 20080124, end: 20080126
  6. DASEN [Concomitant]
     Indication: GASTROENTERITIS BACTERIAL
     Dosage: 10MG PER DAY
     Route: 048
     Dates: start: 20080124, end: 20080126

REACTIONS (11)
  - ABNORMAL BEHAVIOUR [None]
  - ALTERED STATE OF CONSCIOUSNESS [None]
  - BRAIN INJURY [None]
  - DELIRIUM [None]
  - MENTAL DISORDER [None]
  - PYREXIA [None]
  - RASH GENERALISED [None]
  - RESTLESSNESS [None]
  - URINARY RETENTION [None]
  - URINARY TRACT INFECTION [None]
  - URTICARIA [None]
